FAERS Safety Report 18476487 (Version 1)
Quarter: 2020Q4

REPORT INFORMATION
  Report Type: Spontaneous
  Country: US (occurrence: US)
  Receive Date: 20201106
  Receipt Date: 20201106
  Transmission Date: 20210114
  Serious: No
  Sender: FDA-Public Use
  Company Number: US-SA-2020SA305761

PATIENT

DRUGS (1)
  1. KEVZARA [Suspect]
     Active Substance: SARILUMAB
     Indication: NEUROSARCOIDOSIS
     Dosage: UNK
     Dates: end: 202009

REACTIONS (2)
  - Off label use [Unknown]
  - Feeling abnormal [Unknown]
